FAERS Safety Report 8048618-1 (Version None)
Quarter: 2012Q1

REPORT INFORMATION
  Report Type: 
  Country: None (occurrence: None)
  Receive Date: 20120117
  Receipt Date: 20120111
  Transmission Date: 20120608
  Serious: Yes (Hospitalization)
  Sender: FDA-Public Use
  Company Number: AT-TEVA-316923ISR

PATIENT
  Sex: Female
  Weight: 63 kg

DRUGS (2)
  1. RITUXIMAB [Suspect]
     Dosage: 635 MILLIGRAM;
     Route: 042
     Dates: start: 20111201
  2. BENDAMUSTINE [Suspect]
     Dosage: 320 MILLIGRAM;
     Route: 042
     Dates: start: 20111202

REACTIONS (3)
  - DYSPNOEA [None]
  - CHEST PAIN [None]
  - INAPPROPRIATE ANTIDIURETIC HORMONE SECRETION [None]
